FAERS Safety Report 14274512 (Version 1)
Quarter: 2017Q4

REPORT INFORMATION
  Report Type: Spontaneous
  Country: FR (occurrence: FR)
  Receive Date: 20171211
  Receipt Date: 20171211
  Transmission Date: 20180321
  Serious: Yes (Other)
  Sender: FDA-Public Use
  Company Number: FR-OTSUKA-2016_023865

PATIENT
  Age: 4 Month
  Sex: Female

DRUGS (1)
  1. ABILIFY [Suspect]
     Active Substance: ARIPIPRAZOLE
     Indication: PRODUCT USED FOR UNKNOWN INDICATION
     Dosage: 5 MG, BID
     Route: 064

REACTIONS (3)
  - Insomnia [Recovered/Resolved]
  - Foetal exposure during pregnancy [Unknown]
  - Dyskinesia [Recovered/Resolved]
